FAERS Safety Report 17711860 (Version 1)
Quarter: 2020Q2

REPORT INFORMATION
  Report Type: Spontaneous
  Country: US (occurrence: US)
  Receive Date: 20200426
  Receipt Date: 20200426
  Transmission Date: 20200714
  Serious: Yes (Disabling)
  Sender: FDA-Public Use
  Company Number: None

PATIENT
  Age: 26 Year
  Weight: 58.5 kg

DRUGS (2)
  1. RANITIDINE TABS 150MG [Suspect]
     Active Substance: RANITIDINE
     Indication: DYSPEPSIA
     Dosage: ?          QUANTITY:1 TABLET(S);?
     Route: 048
     Dates: start: 20190815, end: 20200107
  2. LO LOESTRIN FE - BIRTH CONTROL [Concomitant]

REACTIONS (2)
  - Cough [None]
  - Swelling [None]

NARRATIVE: CASE EVENT DATE: 20191130
